FAERS Safety Report 21799312 (Version 1)
Quarter: 2022Q4

REPORT INFORMATION
  Report Type: Spontaneous
  Country: FR (occurrence: FR)
  Receive Date: 20221230
  Receipt Date: 20221230
  Transmission Date: 20230113
  Serious: Yes (Other)
  Sender: FDA-Public Use
  Company Number: None

PATIENT
  Age: 25 Year
  Sex: Female

DRUGS (4)
  1. TRILEPTAL [Suspect]
     Active Substance: OXCARBAZEPINE
     Indication: Epilepsy
     Dosage: 225 MG, QD (NON ADMINISTRE)
     Route: 048
     Dates: start: 20221027, end: 20221027
  2. LAMICTAL [Suspect]
     Active Substance: LAMOTRIGINE
     Indication: Epilepsy
     Dosage: 200 MG, QD (NON ADMINISTRE)
     Route: 048
     Dates: start: 20221027, end: 20221027
  3. RIVOTRIL [Suspect]
     Active Substance: CLONAZEPAM
     Indication: Epilepsy
     Dosage: 1 MG, QD (NON ADMINISTRE) (FOUR-DIMENSIONAL TABLET)
     Route: 048
     Dates: start: 20221027, end: 20221027
  4. ZONEGRAN [Suspect]
     Active Substance: ZONISAMIDE
     Indication: Epilepsy
     Dosage: 400 MG, QD (NON ADMINISTRE)
     Route: 048
     Dates: start: 20221027, end: 20221027

REACTIONS (2)
  - Epilepsy [Recovered/Resolved]
  - Product dose omission issue [Recovered/Resolved]

NARRATIVE: CASE EVENT DATE: 20221027
